FAERS Safety Report 8583828-6 (Version None)
Quarter: 2012Q3

REPORT INFORMATION
  Report Type: 
  Country: None (occurrence: None)
  Receive Date: 20120810
  Receipt Date: 20120731
  Transmission Date: 20120928
  Serious: Yes (Hospitalization)
  Sender: FDA-Public Use
  Company Number: FR-009507513-2011SP028213

PATIENT

DRUGS (18)
  1. PEG-INTRON [Suspect]
     Indication: HEPATITIS C
     Dosage: 50 ?G, QW
     Route: 058
     Dates: start: 20100126, end: 20110501
  2. PLACEBO [Suspect]
     Indication: HEPATITIS C
     Dosage: 1000 MG, QD
     Route: 048
     Dates: start: 20100126, end: 20110601
  3. BLINDED POST TRIAL THERAPY [Suspect]
     Dosage: 1000 MG, QD
     Route: 048
     Dates: start: 20100126, end: 20110601
  4. BLINDED PRE TRIAL THERAPY [Suspect]
     Dosage: 1000 MG, QD
     Route: 048
     Dates: start: 20100126, end: 20110601
  5. BLINDED POST TRIAL THERAPY [Suspect]
     Dosage: 1000 MG, QD
     Route: 048
     Dates: start: 20100126, end: 20110601
  6. PRILOSEC [Concomitant]
     Indication: PRODUCT USED FOR UNKNOWN INDICATION
     Dosage: 10 MG, QOD
  7. DIHYDROERGOTAMINE MESYLATE [Concomitant]
     Indication: MIGRAINE WITH AURA
     Dosage: 5 MG, QAM
  8. BLINDED POST TRIAL THERAPY [Suspect]
     Indication: HEPATITIS C
     Dosage: 1000 MG, QD
     Route: 048
     Dates: start: 20100126, end: 20110601
  9. RIBAVIRIN [Suspect]
     Dosage: 1000 MG, QD
     Route: 048
     Dates: start: 20100126, end: 20110601
  10. PLACEBO [Suspect]
     Dosage: 1000 MG, QD
     Route: 048
     Dates: start: 20100126, end: 20110601
  11. RIBAVIRIN [Suspect]
     Indication: HEPATITIS C
     Dosage: 1000 MG, QD
     Route: 048
     Dates: start: 20100126, end: 20110601
  12. CYANOCOBALAMIN [Concomitant]
     Indication: PRODUCT USED FOR UNKNOWN INDICATION
     Dosage: FOR 3 WEEKS
     Route: 030
     Dates: start: 20110501
  13. PEGINTERFERON ALFA-2B [Suspect]
     Indication: HEPATITIS C
     Dosage: 1000 MG, QD
     Route: 048
     Dates: start: 20100126, end: 20110601
  14. BLINDED PRE TRIAL THERAPY [Suspect]
     Indication: HEPATITIS C
     Dosage: 1000 MG, QD
     Route: 048
     Dates: start: 20100126, end: 20110601
  15. BLINDED PRE TRIAL THERAPY [Suspect]
     Dosage: 1000 MG, QD
     Route: 048
     Dates: start: 20100126, end: 20110601
  16. NEORECORMON [Concomitant]
     Indication: PRODUCT USED FOR UNKNOWN INDICATION
     Dosage: 30000 IU, QW
  17. PEGINTERFERON ALFA-2B [Suspect]
     Dosage: 1000 MG, QD
     Route: 048
     Dates: start: 20100126, end: 20110601
  18. PROPRANOLOL HYDROCHLORIDE [Concomitant]
     Indication: HYPERTENSION
     Dosage: 20 MG, BID
     Dates: start: 20091216

REACTIONS (3)
  - SEPSIS [None]
  - ACUTE RESPIRATORY DISTRESS SYNDROME [None]
  - INTERSTITIAL LUNG DISEASE [None]
